FAERS Safety Report 7478498-4 (Version None)
Quarter: 2011Q2

REPORT INFORMATION
  Report Type: 
  Country: None (occurrence: None)
  Receive Date: 20110513
  Receipt Date: 20110510
  Transmission Date: 20111010
  Serious: Yes (Hospitalization)
  Sender: FDA-Public Use
  Company Number: JP-SANOFI-AVENTIS-2011SA018230

PATIENT
  Age: 61 Year
  Sex: Male
  Weight: 43 kg

DRUGS (3)
  1. BUP-4 [Concomitant]
     Indication: POLLAKIURIA
     Route: 048
     Dates: start: 20100118, end: 20100709
  2. ALLEGRA [Suspect]
     Indication: ECZEMA
     Route: 048
     Dates: start: 20100414, end: 20100709
  3. ALL OTHER THERAPEUTIC PRODUCTS [Suspect]
     Indication: POLLAKIURIA
     Route: 048
     Dates: start: 20100426, end: 20100709

REACTIONS (1)
  - ACUTE LUNG INJURY [None]
